FAERS Safety Report 7476603-7 (Version None)
Quarter: 2011Q2

REPORT INFORMATION
  Report Type: 
  Country: None (occurrence: None)
  Receive Date: 20110512
  Receipt Date: 20110503
  Transmission Date: 20111010
  Serious: Yes (Hospitalization, Other)
  Sender: FDA-Public Use
  Company Number: US-ASTRAZENECA-2011SE25937

PATIENT
  Age: 81 Year
  Sex: Female
  Weight: 55 kg

DRUGS (10)
  1. PRILOSEC [Suspect]
     Indication: GASTROOESOPHAGEAL REFLUX DISEASE
     Route: 048
  2. NORVASC [Concomitant]
     Route: 048
  3. METOPROLOL TARTRATE [Concomitant]
  4. PROTONIX [Suspect]
     Indication: OESOPHAGEAL DISORDER
     Route: 065
     Dates: start: 20101001, end: 20110101
  5. BENICAR [Concomitant]
     Route: 048
  6. PROTONIX [Suspect]
     Indication: HIATUS HERNIA
     Route: 065
     Dates: start: 20101001, end: 20110101
  7. PROTONIX [Suspect]
     Indication: GASTROOESOPHAGEAL REFLUX DISEASE
     Route: 065
     Dates: start: 20101001, end: 20110101
  8. CRESTOR [Concomitant]
     Route: 048
  9. ACETYL SALICYLIC ACID USP BAT [Concomitant]
  10. PLAVIX [Concomitant]

REACTIONS (3)
  - CHEST PAIN [None]
  - GASTROOESOPHAGEAL REFLUX DISEASE [None]
  - DRUG INEFFECTIVE [None]
